FAERS Safety Report 6022511-8 (Version None)
Quarter: 2008Q4

REPORT INFORMATION
  Report Type: 
  Country: None (occurrence: None)
  Receive Date: 20081230
  Receipt Date: 20081218
  Transmission Date: 20090506
  Serious: Yes (Life-Threatening, Hospitalization)
  Sender: FDA-Public Use
  Company Number: DE-BAYER-200825553GPV

PATIENT
  Age: 32 Year
  Sex: Female
  Weight: 59 kg

DRUGS (2)
  1. MIRENA [Suspect]
     Indication: DRUG USE FOR UNKNOWN INDICATION
     Dosage: TOTAL DAILY DOSE: 20 ?G
     Route: 015
  2. PARACETAMOL [Concomitant]
     Indication: ABDOMINAL PAIN UPPER

REACTIONS (5)
  - ANAEMIA MACROCYTIC [None]
  - APLASTIC ANAEMIA [None]
  - BICYTOPENIA [None]
  - ORAL HERPES [None]
  - THROMBOCYTOPENIA [None]
